FAERS Safety Report 6421565-4 (Version None)
Quarter: 2009Q4

REPORT INFORMATION
  Report Type: 
  Country: None (occurrence: None)
  Receive Date: 20091029
  Receipt Date: 20091029
  Transmission Date: 20100525
  Serious: Yes (Disabling)
  Sender: FDA-Public Use
  Company Number: None

PATIENT
  Age: 57 Year
  Sex: Female
  Weight: 63.5036 kg

DRUGS (7)
  1. ALENDRONATE, 35 MG, BARR [Suspect]
     Indication: OSTEOPOROSIS
     Dosage: 1 WEEKLY ORAL
     Route: 048
     Dates: start: 20040312, end: 20090815
  2. COPAXONE [Concomitant]
  3. CLONAZEPAM [Concomitant]
  4. SIMVASTATIN [Concomitant]
  5. FLUOXETINE [Concomitant]
  6. LEVOTHYROXINE SODIUM [Concomitant]
  7. ASPIRIN [Concomitant]

REACTIONS (1)
  - PALPITATIONS [None]
